FAERS Safety Report 9384295 (Version 1)
Quarter: 2013Q3

REPORT INFORMATION
  Report Type: Report from Study
  Country: VE (occurrence: VE)
  Receive Date: 20130705
  Receipt Date: 20130705
  Transmission Date: 20140515
  Serious: Yes (Hospitalization, Other)
  Sender: FDA-Public Use
  Company Number: PHHY2013VE064182

PATIENT
  Sex: Female

DRUGS (4)
  1. EXJADE [Suspect]
     Indication: IRON OVERLOAD
     Dosage: 1000 MG, QD
     Route: 048
     Dates: start: 2011
  2. FOLIC ACID [Concomitant]
     Indication: THALASSAEMIA
     Dosage: UNK MG DAILY
     Route: 048
  3. IMIPENEM [Concomitant]
     Dosage: UNK, QD
     Route: 042
     Dates: start: 2011, end: 2011
  4. BLOOD TRANSFUSION, AUXILIARY PRODUCTS [Concomitant]
     Indication: THALASSAEMIA

REACTIONS (6)
  - Renal failure [Recovered/Resolved]
  - Proteinuria [Recovered/Resolved]
  - Arrhythmia [Recovered/Resolved]
  - Dysuria [Recovered/Resolved]
  - Urinary tract infection [Recovered/Resolved]
  - Asthenia [Recovered/Resolved]
